FAERS Safety Report 9000165 (Version 2)
Quarter: 2013Q1

REPORT INFORMATION
  Report Type: Spontaneous
  Country: US (occurrence: US)
  Receive Date: 20130102
  Receipt Date: 20130125
  Transmission Date: 20140127
  Serious: Yes (Other)
  Sender: FDA-Public Use
  Company Number: US-JNJFOC-20121211743

PATIENT
  Sex: Male

DRUGS (10)
  1. REMICADE [Suspect]
     Indication: COLITIS ULCERATIVE
     Route: 042
     Dates: start: 20101116, end: 20121107
  2. BENICAR-HCTZ [Concomitant]
     Indication: BLOOD PRESSURE
     Dosage: DOSE: 40/12.5 MG
     Route: 065
  3. NEXIUM [Concomitant]
     Indication: GASTROOESOPHAGEAL REFLUX DISEASE
     Route: 065
  4. ZANTAC [Concomitant]
     Indication: GASTROOESOPHAGEAL REFLUX DISEASE
     Route: 065
  5. CADUET [Concomitant]
     Indication: BLOOD PRESSURE
     Dosage: DOSE: 10/20 MG
     Route: 065
  6. MIRAPEX [Concomitant]
     Route: 065
  7. FISH OIL [Concomitant]
     Route: 065
  8. FOLIC ACID [Concomitant]
     Route: 065
  9. CENTRUM SILVER [Concomitant]
     Route: 065
  10. GLUCOSAMINE [Concomitant]
     Route: 065

REACTIONS (1)
  - Ophthalmic herpes simplex [Unknown]
